FAERS Safety Report 6436272-1 (Version None)
Quarter: 2009Q4

REPORT INFORMATION
  Report Type: 
  Country: None (occurrence: None)
  Receive Date: 20091111
  Receipt Date: 20091103
  Transmission Date: 20100525
  Serious: Yes (Hospitalization)
  Sender: FDA-Public Use
  Company Number: A0814226A

PATIENT
  Sex: Female

DRUGS (1)
  1. AVANDIA [Suspect]
     Dosage: 8MG UNKNOWN
     Route: 065
     Dates: end: 20070101

REACTIONS (2)
  - CARDIAC FAILURE CONGESTIVE [None]
  - SILENT MYOCARDIAL INFARCTION [None]
